FAERS Safety Report 8296651-7 (Version None)
Quarter: 2012Q2

REPORT INFORMATION
  Report Type: 
  Country: None (occurrence: None)
  Receive Date: 20120418
  Receipt Date: 20120418
  Transmission Date: 20120825
  Serious: Yes (Other)
  Sender: FDA-Public Use
  Company Number: None

PATIENT
  Age: 54 Year
  Sex: Female
  Weight: 66.224 kg

DRUGS (1)
  1. CYMBALTA [Suspect]
     Indication: HYPERSENSITIVITY
     Dosage: 30 MB
     Route: 048
     Dates: start: 20120416, end: 20120416

REACTIONS (9)
  - PARANOIA [None]
  - PALPITATIONS [None]
  - FEELING HOT [None]
  - HYPERHIDROSIS [None]
  - EYE DISORDER [None]
  - SKIN ODOUR ABNORMAL [None]
  - COLD SWEAT [None]
  - FEELING ABNORMAL [None]
  - MYDRIASIS [None]
